FAERS Safety Report 6314455-9 (Version None)
Quarter: 2009Q3

REPORT INFORMATION
  Report Type: 
  Country: None (occurrence: None)
  Receive Date: 20090817
  Receipt Date: 20090803
  Transmission Date: 20100115
  Serious: Yes (Disabling)
  Sender: FDA-Public Use
  Company Number: IDA-00243

PATIENT
  Age: 87 Year
  Sex: Female

DRUGS (1)
  1. INDERAL [Suspect]
     Indication: ESSENTIAL HYPERTENSION
     Dosage: 10 MG DAILY ORAL, TABLET
     Route: 048
     Dates: start: 20080305, end: 20081015

REACTIONS (1)
  - PSORIASIS [None]
